FAERS Safety Report 23096538 (Version 2)
Quarter: 2023Q4

REPORT INFORMATION
  Report Type: Report from Study
  Country: US (occurrence: US)
  Receive Date: 20231023
  Receipt Date: 20231026
  Transmission Date: 20240109
  Serious: No
  Sender: FDA-Public Use
  Company Number: US-002147023-NVSC2023US226833

PATIENT
  Age: 58 Year
  Sex: Female

DRUGS (1)
  1. COSENTYX [Suspect]
     Active Substance: SECUKINUMAB
     Indication: Psoriasis
     Dosage: 300 DOSE, QD
     Route: 058
     Dates: start: 202309

REACTIONS (2)
  - Pain [Unknown]
  - Psoriasis [Unknown]

NARRATIVE: CASE EVENT DATE: 20230913
